FAERS Safety Report 8376687-8 (Version None)
Quarter: 2012Q2

REPORT INFORMATION
  Report Type: 
  Country: None (occurrence: None)
  Receive Date: 20120522
  Receipt Date: 20120509
  Transmission Date: 20120825
  Serious: Yes (Other)
  Sender: FDA-Public Use
  Company Number: NO-CELGENEUS-122-21880-12031874

PATIENT
  Sex: Female
  Weight: 47 kg

DRUGS (7)
  1. MELPHALAN [Suspect]
     Indication: MULTIPLE MYELOMA
     Route: 065
     Dates: start: 20100113
  2. IRBESARTAN [Concomitant]
     Dosage: 300/12.5 MG
     Route: 048
     Dates: start: 20100101
  3. PREDNISONE TAB [Suspect]
     Indication: MULTIPLE MYELOMA
     Route: 065
     Dates: start: 20100113
  4. LISINOPRIL [Concomitant]
     Route: 048
     Dates: start: 20100101
  5. FLUVASTATIN [Concomitant]
     Route: 048
     Dates: start: 20100101
  6. METFORMIN HCL [Concomitant]
     Route: 048
     Dates: start: 20090101
  7. REVLIMID [Suspect]
     Indication: MULTIPLE MYELOMA
     Route: 048
     Dates: start: 20100113, end: 20110105

REACTIONS (1)
  - COLON CANCER METASTATIC [None]
